FAERS Safety Report 8297502 (Version 4)
Quarter: 2014Q2

REPORT INFORMATION
  Report Type: Spontaneous
  Country: US (occurrence: US)
  Receive Date: 20111218
  Receipt Date: 20140520
  Transmission Date: 20141212
  Serious: Yes (Hospitalization, Other)
  Sender: FDA-Public Use
  Company Number: US-ELI_LILLY_AND_COMPANY-US201112002679

PATIENT
  Age: 80 Year
  Sex: Male

DRUGS (5)
  1. OLANZAPINE [Suspect]
  2. ASPIRIN [Concomitant]
  3. INSULIN [Concomitant]
  4. AMLODIPINE [Concomitant]
  5. DONEPEZIL [Concomitant]

REACTIONS (5)
  - Hypothermia [Recovered/Resolved]
  - Bradycardia [Unknown]
  - Respiratory distress [Unknown]
  - Renal failure acute [Unknown]
  - Hypokalaemia [Unknown]
